FAERS Safety Report 9684293 (Version 2)
Quarter: 2013Q4

REPORT INFORMATION
  Report Type: Spontaneous
  Country: US (occurrence: US)
  Receive Date: 20131112
  Receipt Date: 20131202
  Transmission Date: 20140711
  Serious: Yes (Hospitalization)
  Sender: FDA-Public Use
  Company Number: US-B.I. PHARMACEUTICALS,INC./RIDGEFIELD-2013-BI-35904BP

PATIENT
  Age: 88 Year
  Sex: Female
  Weight: 57.61 kg

DRUGS (8)
  1. PRADAXA [Suspect]
     Indication: ATRIAL FIBRILLATION
     Dosage: 150 MG
     Route: 048
     Dates: start: 201205
  2. METOPROLOL TARTRATE [Concomitant]
     Indication: HYPERTENSION
     Dosage: 100 MG
     Route: 048
  3. METOPROLOL TARTRATE [Concomitant]
     Indication: ATRIAL FIBRILLATION
  4. PRIMIDONE [Concomitant]
     Dosage: AS DIRECTED
  5. COLACE [Concomitant]
     Dosage: 100 MG
  6. LASIX [Concomitant]
     Indication: HYPERTENSION
     Dosage: 20 MG
  7. SPIRONOLACTONE [Concomitant]
     Indication: HYPERTENSION
     Dosage: 25 MG
  8. VITAMIN D 3 [Concomitant]
     Dosage: AS DIRECTED

REACTIONS (4)
  - Embolic stroke [Recovered/Resolved]
  - Appendicitis [Recovered/Resolved]
  - Tremor [Not Recovered/Not Resolved]
  - Dyspnoea [Not Recovered/Not Resolved]
